FAERS Safety Report 10050021 (Version 2)
Quarter: 2014Q3

REPORT INFORMATION
  Report Type: Spontaneous
  Country: FR (occurrence: FR)
  Receive Date: 20140401
  Receipt Date: 20140916
  Transmission Date: 20150326
  Serious: Yes (Hospitalization)
  Sender: FDA-Public Use
  Company Number: FR-SA-2014SA036020

PATIENT
  Age: 88 Year
  Sex: Male

DRUGS (7)
  1. ACTISKENAN [Concomitant]
     Active Substance: MORPHINE SULFATE
     Route: 048
     Dates: start: 20140208, end: 20140209
  2. RIVOTRIL [Concomitant]
     Active Substance: CLONAZEPAM
     Indication: EPILEPSY
     Route: 048
     Dates: start: 197811
  3. LOVENOX [Suspect]
     Active Substance: ENOXAPARIN SODIUM
     Indication: PRODUCT USED FOR UNKNOWN INDICATION
     Route: 058
     Dates: start: 20140122, end: 20140217
  4. PARACETAMOL [Concomitant]
     Active Substance: ACETAMINOPHEN
     Route: 048
     Dates: start: 20140206, end: 20140219
  5. DI-HYDAN [Concomitant]
     Active Substance: PHENYTOIN
     Indication: EPILEPSY
     Route: 048
     Dates: start: 197811, end: 20140227
  6. FENOFIBRATE. [Concomitant]
     Active Substance: FENOFIBRATE
     Indication: DYSLIPIDAEMIA
     Route: 048
     Dates: end: 20140227
  7. PREVISCAN [Concomitant]
     Active Substance: FLUINDIONE
     Indication: ATRIAL FIBRILLATION
     Dosage: 15 MG= 3/4 DF DAILY
     Route: 048
     Dates: end: 20140227

REACTIONS (1)
  - Pancytopenia [Recovered/Resolved]

NARRATIVE: CASE EVENT DATE: 20140217
